FAERS Safety Report 8803115 (Version 2)
Quarter: 2014Q2

REPORT INFORMATION
  Report Type: Spontaneous
  Country: US (occurrence: US)
  Receive Date: 20120924
  Receipt Date: 20131017
  Transmission Date: 20141212
  Serious: Yes (Other)
  Sender: FDA-Public Use
  Company Number: US-PFIZER INC-2012232241

PATIENT
  Age: 57 Year
  Sex: Female

DRUGS (3)
  1. PHENYTOIN [Suspect]
     Indication: CONVULSION PROPHYLAXIS
     Dosage: UNK
  2. DEXAMETHASONE SODIUM PHOSPHATE [Interacting]
     Indication: CONVULSION PROPHYLAXIS
     Dosage: UNK
  3. LEVETIRACETAM [Concomitant]
     Dosage: UNK

REACTIONS (4)
  - Drug interaction [Recovered/Resolved]
  - Thrombocytopenia [Recovered/Resolved]
  - Drug reaction with eosinophilia and systemic symptoms [Unknown]
  - Rash [Unknown]
